FAERS Safety Report 17824746 (Version 1)
Quarter: 2020Q2

REPORT INFORMATION
  Report Type: Spontaneous
  Country: FR (occurrence: FR)
  Receive Date: 20200526
  Receipt Date: 20200526
  Transmission Date: 20200714
  Serious: Yes (Other)
  Sender: FDA-Public Use
  Company Number: FR-ASTRAZENECA-2020SE66408

PATIENT
  Age: 822 Month
  Sex: Female

DRUGS (1)
  1. MOPRAL [Suspect]
     Active Substance: OMEPRAZOLE
     Dosage: 20.0MG UNKNOWN
     Route: 048
     Dates: start: 2018

REACTIONS (2)
  - Hypertriglyceridaemia [Not Recovered/Not Resolved]
  - Renal failure [Not Recovered/Not Resolved]

NARRATIVE: CASE EVENT DATE: 2018
